FAERS Safety Report 7472128-3 (Version None)
Quarter: 2011Q2

REPORT INFORMATION
  Report Type: 
  Country: None (occurrence: None)
  Receive Date: 20110511
  Receipt Date: 20110113
  Transmission Date: 20111010
  Serious: No
  Sender: FDA-Public Use
  Company Number: A0906583A

PATIENT
  Age: 59 Year
  Sex: Female
  Weight: 55.5 kg

DRUGS (7)
  1. TYKERB [Suspect]
     Dosage: 1500MG PER DAY
     Route: 048
     Dates: start: 20101210
  2. VITAMIN D [Concomitant]
  3. ZOMETA [Concomitant]
     Route: 042
  4. FASLODEX [Concomitant]
     Route: 030
  5. TRAZODONE HCL [Concomitant]
  6. ACETAMINOPHEN [Concomitant]
     Route: 048
  7. LUNESTA [Concomitant]

REACTIONS (5)
  - MOOD SWINGS [None]
  - FATIGUE [None]
  - CONSTIPATION [None]
  - ASTHENIA [None]
  - ORAL PAIN [None]
